FAERS Safety Report 6262407-X (Version None)
Quarter: 2009Q3

REPORT INFORMATION
  Report Type: 
  Country: None (occurrence: None)
  Receive Date: 20090709
  Receipt Date: 20090701
  Transmission Date: 20100115
  Serious: No
  Sender: FDA-Public Use
  Company Number: US-JNJFOC-20090700915

PATIENT
  Sex: Female
  Weight: 83.01 kg

DRUGS (6)
  1. DURAGESIC-100 [Suspect]
     Indication: HYSTERECTOMY
     Route: 062
  2. PROZAC [Concomitant]
     Indication: ANXIETY
     Route: 048
  3. ESTRADIOL [Concomitant]
     Indication: HORMONE REPLACEMENT THERAPY
     Route: 062
  4. TRICOR [Concomitant]
     Indication: BLOOD CHOLESTEROL
     Route: 048
  5. KLONOPIN [Concomitant]
     Indication: ANXIETY
     Route: 048
  6. OXYCODONE [Concomitant]
     Indication: PAIN
     Dosage: 10MG/325MG
     Route: 048

REACTIONS (4)
  - APPLICATION SITE ERYTHEMA [None]
  - APPLICATION SITE ULCER [None]
  - INAPPROPRIATE SCHEDULE OF DRUG ADMINISTRATION [None]
  - OFF LABEL USE [None]
